FAERS Safety Report 10101127 (Version 3)
Quarter: 2014Q2

REPORT INFORMATION
  Report Type: Spontaneous
  Country: US (occurrence: US)
  Receive Date: 20140424
  Receipt Date: 20140428
  Transmission Date: 20141212
  Serious: Yes (Hospitalization, Other)
  Sender: FDA-Public Use
  Company Number: US-009507513-1403USA007467

PATIENT
  Age: 45 Year
  Sex: Female
  Weight: 86.62 kg

DRUGS (1)
  1. INTRONA [Suspect]
     Indication: CARCINOID SYNDROME
     Dosage: 3 MILLION IU MONDAY, WEDNESDAY AND FRIDAY
     Route: 058

REACTIONS (4)
  - Device related sepsis [Recovered/Resolved]
  - Central venous catheter removal [Unknown]
  - Device related infection [Unknown]
  - Drug dose omission [Unknown]
